FAERS Safety Report 7214278-2 (Version None)
Quarter: 2011Q1

REPORT INFORMATION
  Report Type: 
  Country: None (occurrence: None)
  Receive Date: 20110107
  Receipt Date: 20110104
  Transmission Date: 20110831
  Serious: Yes (Other)
  Sender: FDA-Public Use
  Company Number: US-JNJFOC-20110100612

PATIENT
  Sex: Male

DRUGS (5)
  1. CLONAZEPAM [Concomitant]
     Route: 048
  2. CITALOPRAM [Concomitant]
     Route: 048
  3. RISPERIDONE [Suspect]
     Indication: PRODUCT USED FOR UNKNOWN INDICATION
     Route: 048
  4. RISPERIDONE [Suspect]
     Route: 048
  5. RISPERIDONE [Suspect]
     Route: 048

REACTIONS (6)
  - WITHDRAWAL SYNDROME [None]
  - DECREASED INTEREST [None]
  - PANIC ATTACK [None]
  - LOSS OF LIBIDO [None]
  - ACTIVITIES OF DAILY LIVING IMPAIRED [None]
  - SUICIDAL IDEATION [None]
